FAERS Safety Report 5767325-9 (Version None)
Quarter: 2008Q2

REPORT INFORMATION
  Report Type: 
  Country: None (occurrence: None)
  Receive Date: 20080612
  Receipt Date: 20080610
  Transmission Date: 20081010
  Serious: Yes (Death)
  Sender: FDA-Public Use
  Company Number: US-BRISTOL-MYERS SQUIBB COMPANY-14223226

PATIENT

DRUGS (1)
  1. AVALIDE [Suspect]

REACTIONS (1)
  - SHOCK [None]
